FAERS Safety Report 12799488 (Version 1)
Quarter: 2016Q3

REPORT INFORMATION
  Report Type: Report from Study
  Country: US (occurrence: US)
  Receive Date: 20160930
  Receipt Date: 20160930
  Transmission Date: 20161109
  Serious: Yes (Other)
  Sender: FDA-Public Use
  Company Number: US-AMGEN-USASL2016133139

PATIENT

DRUGS (1)
  1. KYPROLIS [Suspect]
     Active Substance: CARFILZOMIB
     Indication: PRODUCT USED FOR UNKNOWN INDICATION
     Dosage: UNK
     Route: 065

REACTIONS (26)
  - Malaise [Unknown]
  - Red blood cell abnormality [Unknown]
  - Pain in extremity [Unknown]
  - Pain [Unknown]
  - Metastases to liver [Unknown]
  - Chondropathy [Unknown]
  - Back pain [Unknown]
  - Arthralgia [Unknown]
  - Neck pain [Unknown]
  - Fatigue [Unknown]
  - Dyspnoea [Unknown]
  - Dehydration [Unknown]
  - Pelvic pain [Unknown]
  - Dizziness [Unknown]
  - Hepatic cancer [Unknown]
  - Neutropenia [Unknown]
  - B-cell lymphoma stage I [Unknown]
  - Hypogammaglobulinaemia [Unknown]
  - Nasal disorder [Unknown]
  - Pyrexia [Unknown]
  - Sinus disorder [Unknown]
  - Bone disorder [Unknown]
  - Platelet disorder [Unknown]
  - Headache [Unknown]
  - Nausea [Unknown]
  - Anaemia [Unknown]

NARRATIVE: CASE EVENT DATE: 20140716
